FAERS Safety Report 13556541 (Version 3)
Quarter: 2018Q2

REPORT INFORMATION
  Report Type: Spontaneous
  Country: US (occurrence: US)
  Receive Date: 20170517
  Receipt Date: 20180515
  Transmission Date: 20180711
  Serious: Yes (Hospitalization)
  Sender: FDA-Public Use
  Company Number: US-SA-2017SA025294

PATIENT
  Age: 73 Year
  Sex: Female
  Weight: 60.78 kg

DRUGS (13)
  1. TOUJEO [Suspect]
     Active Substance: INSULIN GLARGINE
     Indication: TYPE 1 DIABETES MELLITUS
     Route: 065
     Dates: end: 20170206
  2. ZETIA [Concomitant]
     Active Substance: EZETIMIBE
     Indication: BLOOD CHOLESTEROL
     Dosage: 3 NIGHT PER WEEK
  3. LEVEMIR [Concomitant]
     Active Substance: INSULIN DETEMIR
     Dosage: 28 UNITS IN THE MORNING AND 7 UNITS IN THE EVENING
     Dates: end: 201702
  4. ALTACE [Concomitant]
     Active Substance: RAMIPRIL
     Indication: RENAL DISORDER
     Dosage: 3NIGHT PER WEEK
  5. SOLOSTAR [Concomitant]
     Active Substance: DEVICE
     Indication: TYPE 1 DIABETES MELLITUS
     Dates: start: 201702
  6. ALTACE [Concomitant]
     Active Substance: RAMIPRIL
     Indication: BLOOD CHOLESTEROL
     Dosage: 3NIGHT PER WEEK
  7. SOLOSTAR [Concomitant]
     Active Substance: DEVICE
     Indication: TYPE 1 DIABETES MELLITUS
     Dates: start: 201702
  8. PROCAL [Concomitant]
     Active Substance: SODIUM FLUORIDE
     Dosage: 20MLG
  9. SOLOSTAR [Concomitant]
     Active Substance: DEVICE
     Indication: TYPE 1 DIABETES MELLITUS
     Dates: end: 20170206
  10. TOUJEO [Suspect]
     Active Substance: INSULIN GLARGINE
     Indication: TYPE 1 DIABETES MELLITUS
     Dosage: DOSE:28 UNIT(S)
     Route: 065
     Dates: start: 20170202
  11. LEVEMIR [Concomitant]
     Active Substance: INSULIN DETEMIR
  12. HUMALOG [Concomitant]
     Active Substance: INSULIN LISPRO
     Indication: DIABETES MELLITUS
     Dosage: SLIDING SCALE, AS NEEDE/ 3UNITS PER MEAL
  13. CIMZIA [Concomitant]
     Active Substance: CERTOLIZUMAB PEGOL
     Indication: ANKYLOSING SPONDYLITIS
     Dosage: ONCE  A MONTH

REACTIONS (4)
  - Urinary tract infection [Recovered/Resolved]
  - Hypoglycaemia [Recovered/Resolved]
  - Dizziness [Recovered/Resolved]
  - Syncope [Recovered/Resolved]

NARRATIVE: CASE EVENT DATE: 2017
